FAERS Safety Report 13775188 (Version 3)
Quarter: 2020Q1

REPORT INFORMATION
  Report Type: Spontaneous
  Country: JP (occurrence: JP)
  Receive Date: 20170720
  Receipt Date: 20200330
  Transmission Date: 20200409
  Serious: Yes (Death, Other)
  Sender: FDA-Public Use
  Company Number: PHJP2017JP023061

PATIENT
  Age: 76 Year
  Sex: Male

DRUGS (2)
  1. PAZOPANIB [Suspect]
     Active Substance: PAZOPANIB
     Dosage: 200 MG, QD
     Route: 048
  2. PAZOPANIB [Suspect]
     Active Substance: PAZOPANIB
     Indication: SOFT TISSUE SARCOMA
     Dosage: 400 MG, QD
     Route: 048

REACTIONS (6)
  - Acute abdomen [Fatal]
  - Intestinal metastasis [Unknown]
  - Tumour necrosis [Unknown]
  - Small intestinal perforation [Fatal]
  - Nephrotic syndrome [Unknown]
  - Malignant neoplasm progression [Unknown]
